FAERS Safety Report 24107317 (Version 2)
Quarter: 2024Q3

REPORT INFORMATION
  Report Type: Spontaneous
  Country: PT (occurrence: PT)
  Receive Date: 20240718
  Receipt Date: 20240731
  Transmission Date: 20241017
  Serious: Yes (Life-Threatening, Hospitalization, Other)
  Sender: ALKEM
  Company Number: None

PATIENT
  Age: 8 Decade
  Sex: Male

DRUGS (18)
  1. ATORVASTATIN CALCIUM [Interacting]
     Active Substance: ATORVASTATIN CALCIUM
     Indication: Product used for unknown indication
     Dosage: 40 MILLIGRAM, QD (EVERY 1 DAY)
     Route: 065
  2. QUETIAPINE FUMARATE [Interacting]
     Active Substance: QUETIAPINE FUMARATE
     Indication: Product used for unknown indication
     Dosage: 100 MILLIGRAM, QD (EVERY 1 DAY )
     Route: 065
  3. TRAZODONE [Interacting]
     Active Substance: TRAZODONE HYDROCHLORIDE
     Indication: Product used for unknown indication
     Dosage: 300 MILLIGRAM, QD (EVERY 1 DAY)
     Route: 065
  4. BUPROPION [Interacting]
     Active Substance: BUPROPION
     Indication: Weight decreased
     Dosage: 300 MILLIGRAM, QD (EVERY 1 DAY)
     Route: 048
  5. CHLORDIAZEPOXIDE [Interacting]
     Active Substance: CHLORDIAZEPOXIDE
     Indication: Weight decreased
     Dosage: 16 MILLIGRAM, QD (EVERY 1 DAY)
     Route: 048
  6. HERBALS [Interacting]
     Active Substance: HERBALS
     Indication: Weight decreased
     Dosage: 980 MILLIGRAM, QD (EVERY 1 DAY)
     Route: 048
  7. HERBALS [Interacting]
     Active Substance: HERBALS
     Indication: Weight decreased
     Dosage: 1000 MILLIGRAM, QD (EVERY 1 DAY)
     Route: 048
  8. FUROSEMIDE [Interacting]
     Active Substance: FUROSEMIDE
     Indication: Weight decreased
     Dosage: 50 MILLIGRAM, QD  (EVERY 1 DAY)
     Route: 048
  9. LORAZEPAM [Interacting]
     Active Substance: LORAZEPAM
     Indication: Product used for unknown indication
     Dosage: 2.5 MILLIGRAM, QD (EVERY 1 DAY))
     Route: 065
  10. PHENOLPHTHALEIN [Interacting]
     Active Substance: PHENOLPHTHALEIN
     Indication: Weight decreased
     Dosage: 160 MILLIGRAM, QD (EVERY 1 DAY)
     Route: 048
  11. AMLODIPINE [Concomitant]
     Active Substance: AMLODIPINE BESYLATE
     Indication: Product used for unknown indication
     Dosage: 5 MILLIGRAM, QD (EVERY 1 DAY)
     Route: 065
  12. ASPIRIN [Concomitant]
     Active Substance: ASPIRIN
     Indication: Product used for unknown indication
     Dosage: 100 MILLIGRAM, QD (EVERY 1 DAY)
     Route: 065
  13. CANDESARTAN [Concomitant]
     Active Substance: CANDESARTAN
     Indication: Product used for unknown indication
     Dosage: 8 MILLIGRAM, QD (EVERY 1 DAY)
     Route: 065
  14. LEVOTHYROXINE [Concomitant]
     Active Substance: LEVOTHYROXINE\LEVOTHYROXINE SODIUM
     Indication: Product used for unknown indication
     Dosage: 0.137 MILLIGRAM, QD (EVERY 1 DAY)
     Route: 065
  15. LIRAGLUTIDE [Concomitant]
     Active Substance: LIRAGLUTIDE
     Indication: Product used for unknown indication
     Dosage: 0.6 MILLIGRAM, QD (EVERY 1 DAY)
     Route: 065
  16. METFORMIN [Concomitant]
     Active Substance: METFORMIN HYDROCHLORIDE
     Indication: Weight decreased
     Dosage: 700 MILLIGRAM, QD (EVERY 1 DAY)
     Route: 048
  17. METFORMIN [Concomitant]
     Active Substance: METFORMIN HYDROCHLORIDE
     Dosage: UNK, QD (EVERY 1 DAY)
     Route: 048
  18. METFORMIN [Concomitant]
     Active Substance: METFORMIN HYDROCHLORIDE
     Dosage: 500 MILLIGRAM
     Route: 048

REACTIONS (5)
  - Encephalopathy [Recovered/Resolved]
  - Acute kidney injury [Recovering/Resolving]
  - Rhabdomyolysis [Recovering/Resolving]
  - Drug interaction [Recovered/Resolved]
  - Hypovolaemia [Recovered/Resolved]
